FAERS Safety Report 19034202 (Version 10)
Quarter: 2021Q3

REPORT INFORMATION
  Report Type: Report from Study
  Country: US (occurrence: US)
  Receive Date: 20210319
  Receipt Date: 20210929
  Transmission Date: 20211014
  Serious: Yes (Other)
  Sender: FDA-Public Use
  Company Number: NVSC2021US054706

PATIENT
  Age: 61 Year
  Sex: Female

DRUGS (7)
  1. KESIMPTA [Suspect]
     Active Substance: OFATUMUMAB
     Dosage: 20 MG, QMO
     Route: 058
  2. KESIMPTA [Suspect]
     Active Substance: OFATUMUMAB
     Dosage: 20 MG
     Route: 065
  3. KESIMPTA [Suspect]
     Active Substance: OFATUMUMAB
     Indication: RELAPSING-REMITTING MULTIPLE SCLEROSIS
     Dosage: 20 MG
     Route: 058
  4. KESIMPTA [Suspect]
     Active Substance: OFATUMUMAB
     Indication: SECONDARY PROGRESSIVE MULTIPLE SCLEROSIS
     Dosage: 20 MG, QMO ((BENEATH THE SKIN, USUALLY VIA INJECTION)
     Route: 058
  5. KESIMPTA [Suspect]
     Active Substance: OFATUMUMAB
     Dosage: 20 MG
     Route: 065
  6. KESIMPTA [Suspect]
     Active Substance: OFATUMUMAB
     Dosage: 20 MG, QMO
     Route: 058
  7. KESIMPTA [Suspect]
     Active Substance: OFATUMUMAB
     Indication: CLINICALLY ISOLATED SYNDROME
     Dosage: 20 MG
     Route: 065

REACTIONS (30)
  - Peripheral swelling [Unknown]
  - Neck pain [Unknown]
  - Alopecia [Unknown]
  - Insomnia [Unknown]
  - Dysphagia [Unknown]
  - Musculoskeletal stiffness [Unknown]
  - Nausea [Unknown]
  - Rheumatoid arthritis [Unknown]
  - Osteoporosis [Unknown]
  - Weight decreased [Unknown]
  - Hypoaesthesia [Unknown]
  - Asthenia [Unknown]
  - Dizziness [Unknown]
  - Emotional disorder [Unknown]
  - Product storage error [Unknown]
  - Feeling abnormal [Unknown]
  - Bursitis [Unknown]
  - Blister [Unknown]
  - Stress [Unknown]
  - Fall [Unknown]
  - Pain [Unknown]
  - Crying [Unknown]
  - Product dose omission issue [Recovered/Resolved]
  - Pain in extremity [Unknown]
  - Headache [Unknown]
  - Amnesia [Unknown]
  - Alopecia [Recovered/Resolved]
  - Multiple sclerosis relapse [Unknown]
  - Abdominal discomfort [Unknown]
  - Visual impairment [Unknown]

NARRATIVE: CASE EVENT DATE: 20210303
